FAERS Safety Report 10629115 (Version 2)
Quarter: 2014Q4

REPORT INFORMATION
  Report Type: Spontaneous
  Country: BE (occurrence: BE)
  Receive Date: 20141205
  Receipt Date: 20141211
  Transmission Date: 20150529
  Serious: Yes (Other)
  Sender: FDA-Public Use
  Company Number: BE-AMGEN-BELSP2014093800

PATIENT
  Age: 43 Year
  Sex: Female

DRUGS (4)
  1. ENBREL [Suspect]
     Active Substance: ETANERCEPT
     Indication: RHEUMATOID ARTHRITIS
     Dosage: 50 MG, WEEKLY
     Route: 058
     Dates: start: 20141122, end: 20141122
  2. MEDROL [Concomitant]
     Active Substance: METHYLPREDNISOLONE
     Indication: ANGIOEDEMA
     Dosage: 8 MG, 1X/DAY
     Dates: start: 2014
  3. MEDROL [Concomitant]
     Active Substance: METHYLPREDNISOLONE
     Indication: PRURITUS
     Dosage: 32 MG, UNK
  4. AZATHIOPRINE. [Concomitant]
     Active Substance: AZATHIOPRINE
     Dosage: 100 MG, 1X/DAY
     Dates: start: 2012

REACTIONS (4)
  - Angioedema [Recovered/Resolved]
  - Pruritus [Recovered/Resolved]
  - Reaction to drug excipients [Recovered/Resolved]
  - Rubber sensitivity [Recovered/Resolved]

NARRATIVE: CASE EVENT DATE: 20141122
